FAERS Safety Report 9164755 (Version 2)
Quarter: 2013Q1

REPORT INFORMATION
  Report Type: Spontaneous
  Country: RU (occurrence: None)
  Receive Date: 20130226
  Receipt Date: 20130228
  Transmission Date: 20140127
  Serious: Yes (Other)
  Sender: FDA-Public Use
  Company Number: RU-1196672

PATIENT
  Age: 63 Year
  Sex: Female

DRUGS (1)
  1. TRAVATAN [Suspect]
     Indication: OPEN ANGLE GLAUCOMA
     Dosage: OPHTHALMIC

REACTIONS (1)
  - Drug hypersensitivity [None]
